FAERS Safety Report 16172604 (Version 1)
Quarter: 2019Q2

REPORT INFORMATION
  Report Type: Spontaneous
  Country: US (occurrence: US)
  Receive Date: 20190409
  Receipt Date: 20190409
  Transmission Date: 20190711
  Serious: No
  Sender: FDA-Public Use
  Company Number: US-IPSEN BIOPHARMACEUTICALS, INC.-2019-05188

PATIENT
  Sex: Female
  Weight: 52.1 kg

DRUGS (1)
  1. SOMATULINE DEPOT [Suspect]
     Active Substance: LANREOTIDE ACETATE
     Indication: CARCINOID SYNDROME
     Dosage: INJECTION
     Route: 058

REACTIONS (8)
  - Low density lipoprotein increased [Unknown]
  - Therapeutic response decreased [Unknown]
  - Blood cholesterol increased [Unknown]
  - Off label use [Unknown]
  - Blood glucose increased [Unknown]
  - Blood triglycerides increased [Unknown]
  - Blood homocysteine increased [Unknown]
  - Very low density lipoprotein increased [Unknown]
